FAERS Safety Report 24251889 (Version 1)
Quarter: 2024Q3

REPORT INFORMATION
  Report Type: Spontaneous
  Country: AU (occurrence: AU)
  Receive Date: 20240827
  Receipt Date: 20240827
  Transmission Date: 20241016
  Serious: Yes (Other)
  Sender: DR REDDYS
  Company Number: AU-AUS-SPO/AUS/24/0012284

PATIENT
  Age: 54 Year
  Sex: Female

DRUGS (2)
  1. POSACONAZOLE [Suspect]
     Active Substance: POSACONAZOLE
     Indication: Product used for unknown indication
     Route: 065
  2. VORICONAZOLE [Suspect]
     Active Substance: VORICONAZOLE
     Indication: Product used for unknown indication
     Route: 065

REACTIONS (7)
  - Bowen^s disease [Unknown]
  - Skin cancer [Unknown]
  - Electrocardiogram QT prolonged [Unknown]
  - Alopecia [Unknown]
  - Brain fog [Unknown]
  - Fatigue [Unknown]
  - Hypophosphataemia [Unknown]
